FAERS Safety Report 5807281-8 (Version None)
Quarter: 2008Q3

REPORT INFORMATION
  Report Type: 
  Country: None (occurrence: None)
  Receive Date: 20080709
  Receipt Date: 20080709
  Transmission Date: 20090109
  Serious: Yes (Other)
  Sender: FDA-Public Use
  Company Number: None

PATIENT
  Age: 46 Year
  Sex: Male
  Weight: 81.6475 kg

DRUGS (1)
  1. LEVAQUIN [Suspect]
     Indication: BIOPSY COLON
     Dosage: 2 PILLS ON CONSECUTIVE DAYS ONE TIME
     Dates: start: 20050701, end: 20050702

REACTIONS (3)
  - INJURY [None]
  - PAROSMIA [None]
  - TENDONITIS [None]
